FAERS Safety Report 9999219 (Version 1)
Quarter: 2014Q1

REPORT INFORMATION
  Report Type: Spontaneous
  Country: US (occurrence: None)
  Receive Date: 20140311
  Receipt Date: 20140311
  Transmission Date: 20141002
  Serious: Yes (Other)
  Sender: FDA-Public Use
  Company Number: None

PATIENT
  Sex: Male
  Weight: 88.45 kg

DRUGS (1)
  1. HERBS (UNSPECIFIED INGREDIENT) [Suspect]
     Indication: BLOOD PRESSURE
     Route: 048

REACTIONS (4)
  - Dizziness [None]
  - Lethargy [None]
  - Blood pressure decreased [None]
  - Heart rate decreased [None]
